FAERS Safety Report 15500720 (Version 2)
Quarter: 2021Q1

REPORT INFORMATION
  Report Type: Report from Study
  Country: JP (occurrence: JP)
  Receive Date: 20181015
  Receipt Date: 20210107
  Transmission Date: 20210419
  Serious: Yes (Hospitalization)
  Sender: FDA-Public Use
  Company Number: JP-ELI_LILLY_AND_COMPANY-JP201810002553

PATIENT
  Age: 68 Year
  Sex: Male
  Weight: 81 kg

DRUGS (24)
  1. LANTUS [Concomitant]
     Active Substance: INSULIN GLARGINE
     Dosage: 12 IU, DAILY
     Route: 058
     Dates: start: 20170424, end: 20171226
  2. WARFARIN [Concomitant]
     Active Substance: WARFARIN
     Indication: ATRIAL FIBRILLATION
     Dosage: UNK
     Route: 048
     Dates: end: 20181206
  3. CLOPIDOGREL [Concomitant]
     Active Substance: CLOPIDOGREL BISULFATE
     Indication: PROPHYLAXIS
     Dosage: UNK
     Dates: start: 201801, end: 20180202
  4. CRAVIT [Concomitant]
     Active Substance: LEVOFLOXACIN
     Indication: CATARACT
     Dosage: UNK
     Dates: start: 20190411, end: 20190906
  5. HUMALOG [Concomitant]
     Active Substance: INSULIN LISPRO
     Dosage: 16 UNK
     Dates: start: 20190316
  6. BAYASPIRIN [Concomitant]
     Active Substance: ASPIRIN
     Indication: PROPHYLAXIS
     Dosage: UNK
     Dates: start: 201801
  7. LIXIANA OD [Concomitant]
     Active Substance: EDOXABAN TOSYLATE
     Indication: ATRIAL FIBRILLATION
     Dosage: UNK
     Dates: start: 20181207
  8. ZETIA [Concomitant]
     Active Substance: EZETIMIBE
     Indication: DYSLIPIDAEMIA
     Dosage: UNK
     Route: 048
  9. RINDERON A [Concomitant]
     Active Substance: BETAMETHASONE SODIUM PHOSPHATE\NEOMYCIN SULFATE
     Indication: CATARACT
     Dosage: UNK
     Dates: start: 20190404, end: 201904
  10. INSULIN GLARGINE BS                /01483501/ [Concomitant]
     Indication: TYPE 2 DIABETES MELLITUS
     Dosage: 12 IU, DAILY
     Route: 058
     Dates: start: 20171227
  11. NEXIUM I.V. [Concomitant]
     Active Substance: ESOMEPRAZOLE SODIUM
     Indication: PROPHYLAXIS
     Dosage: UNK
     Dates: start: 201801
  12. TRULICITY [Suspect]
     Active Substance: DULAGLUTIDE
     Indication: TYPE 2 DIABETES MELLITUS
     Dosage: 0.75 MG, WEEKLY (1/W)
     Route: 058
     Dates: start: 20170206
  13. KARY UNI                           /00528801/ [Concomitant]
     Active Substance: PIRENOXINE
     Indication: CATARACT
     Dosage: UNK
     Route: 047
     Dates: end: 20190325
  14. URSODEOXYCHOLIC ACID [Concomitant]
     Active Substance: URSODIOL
     Indication: PROPHYLAXIS
     Dosage: UNK
     Dates: start: 20180121
  15. BEZAFIBRATE [Concomitant]
     Active Substance: BEZAFIBRATE
     Indication: DYSLIPIDAEMIA
     Dosage: UNK
     Route: 048
     Dates: end: 20171226
  16. JARDIANCE [Concomitant]
     Active Substance: EMPAGLIFLOZIN
     Indication: TYPE 2 DIABETES MELLITUS
     Dosage: 10 MG
     Dates: start: 20180712
  17. CEFZON [CEFDINIR] [Concomitant]
     Active Substance: CEFDINIR
     Indication: CATARACT
     Dosage: UNK
     Dates: start: 20190403, end: 20190412
  18. FLUMETHOLON [Concomitant]
     Active Substance: FLUOROMETHOLONE
     Indication: CATARACT
     Dosage: UNK
     Dates: start: 20190517, end: 20190906
  19. ATORVASTATIN                       /01326102/ [Concomitant]
     Active Substance: ATORVASTATIN
     Indication: DYSLIPIDAEMIA
     Dosage: UNK
     Route: 048
     Dates: start: 20171227
  20. DICLOD [Concomitant]
     Active Substance: DICLOFENAC SODIUM
     Indication: CATARACT
     Dosage: UNK
     Dates: start: 20190404, end: 20190906
  21. HUMALOG [Concomitant]
     Active Substance: INSULIN LISPRO
     Indication: TYPE 2 DIABETES MELLITUS
     Dosage: 14 IU, UNK
     Route: 058
     Dates: start: 20170206, end: 20190315
  22. LANTUS [Concomitant]
     Active Substance: INSULIN GLARGINE
     Indication: TYPE 2 DIABETES MELLITUS
     Dosage: 10 IU, DAILY
     Route: 058
     Dates: end: 20170423
  23. AMLODIPINE BESILATE [Concomitant]
     Active Substance: AMLODIPINE BESYLATE
     Indication: HYPERTENSION
     Dosage: UNK
     Route: 048
     Dates: start: 20171201
  24. MUCOSTA [Concomitant]
     Active Substance: REBAMIPIDE
     Indication: PROPHYLAXIS
     Dosage: UNK
     Dates: start: 20190403, end: 20190412

REACTIONS (4)
  - Pancreatitis acute [Recovered/Resolved]
  - Cardiac failure acute [Recovered/Resolved]
  - Cholecystitis acute [Recovered/Resolved]
  - Myocardial ischaemia [Recovered/Resolved]

NARRATIVE: CASE EVENT DATE: 20170912
